FAERS Safety Report 6074065-8 (Version None)
Quarter: 2009Q1

REPORT INFORMATION
  Report Type: 
  Country: None (occurrence: None)
  Receive Date: 20090211
  Receipt Date: 20090205
  Transmission Date: 20090719
  Serious: Yes (Death, Hospitalization, Congenital Anomaly)
  Sender: FDA-Public Use
  Company Number: A0752264A

PATIENT
  Sex: Male

DRUGS (9)
  1. PAXIL [Suspect]
     Indication: DEPRESSION
  2. VICODIN [Concomitant]
  3. TOPAMAX [Concomitant]
     Dosage: 100MG PER DAY
  4. BEXTRA [Concomitant]
     Dosage: 20MG AS REQUIRED
  5. BACLOFEN [Concomitant]
     Dosage: 10MG THREE TIMES PER DAY
  6. LIDODERM [Concomitant]
  7. BUSPAR [Concomitant]
  8. ZOFRAN [Concomitant]
  9. ZYDONE [Concomitant]

REACTIONS (8)
  - AORTIC STENOSIS [None]
  - ATRIAL SEPTAL DEFECT [None]
  - CONVULSION [None]
  - DEATH [None]
  - DRUG EXPOSURE DURING PREGNANCY [None]
  - HYPOPLASTIC LEFT HEART SYNDROME [None]
  - MITRAL VALVE STENOSIS [None]
  - MULTIPLE CONGENITAL ABNORMALITIES [None]
